FAERS Safety Report 4388503-X (Version None)
Quarter: 2004Q2

REPORT INFORMATION
  Report Type: 
  Country: None (occurrence: None)
  Receive Date: 20040624
  Receipt Date: 20040609
  Transmission Date: 20050107
  Serious: Yes (Hospitalization)
  Sender: FDA-Public Use
  Company Number: 100937

PATIENT
  Age: 55 Year
  Sex: Female

DRUGS (5)
  1. MABTHERA (RITUXIMAB) CONC FOR SOLUTION FOR INFUSION [Suspect]
     Indication: LYMPHOMA
     Dosage: 700 MG, Q3W, INTRAVENOUS
     Route: 042
     Dates: start: 20010716, end: 20010917
  2. DOXORUBICIN (DOXORUBICIN, DOXRUBICIN HYDROCHLORIDE) SOLUTION FOR INJEC [Suspect]
     Indication: LYMPHOMA
     Dosage: UNK, Q3W, INTRAVENOUS
     Route: 042
     Dates: start: 20010717, end: 20010829
  3. CYCLOPHOSPHAMIDE [Suspect]
     Indication: LYMPHOMA
     Dosage: UNK, Q3W, INTRAVENOUS
     Route: 042
     Dates: start: 20010717, end: 20010829
  4. VINCRISTINE [Suspect]
     Indication: LYMPHOMA
     Dosage: UNK, Q3W, INTRAVENOUS
     Route: 042
     Dates: start: 20010717, end: 20010829
  5. PREDNISONE [Suspect]
     Indication: LYMPHOMA
     Dosage: UNK, Q3W, UNKNOWN
     Dates: start: 20010717, end: 20010829

REACTIONS (12)
  - AGRANULOCYTOSIS [None]
  - AUTOIMMUNE DISORDER [None]
  - BLOOD LACTATE DEHYDROGENASE INCREASED [None]
  - BONE MARROW TRANSPLANT [None]
  - MEGAKARYOCYTES ABNORMAL [None]
  - MONOCYTE COUNT INCREASED [None]
  - NEUTROPENIA [None]
  - PYREXIA [None]
  - SPINAL CORD NEOPLASM [None]
  - UNEVALUABLE EVENT [None]
  - VIRAL INFECTION [None]
  - WHITE BLOOD CELL COUNT INCREASED [None]
